FAERS Safety Report 11533319 (Version 1)
Quarter: 2015Q3

REPORT INFORMATION
  Report Type: Spontaneous
  Country: US (occurrence: US)
  Receive Date: 20150921
  Receipt Date: 20150921
  Transmission Date: 20151125
  Serious: No
  Sender: FDA-Public Use
  Company Number: US-ALLERGAN-1417257US

PATIENT
  Sex: Female

DRUGS (2)
  1. ZYRTEC [Concomitant]
     Active Substance: CETIRIZINE HYDROCHLORIDE
     Indication: PRODUCT USED FOR UNKNOWN INDICATION
     Dosage: UNK
  2. LASTACAFT [Suspect]
     Active Substance: ALCAFTADINE
     Indication: EYE ALLERGY
     Dosage: 2 GTT, UNK
     Route: 047

REACTIONS (1)
  - Eye irritation [Unknown]
